FAERS Safety Report 16066034 (Version 1)
Quarter: 2019Q1

REPORT INFORMATION
  Report Type: Spontaneous
  Country: FR (occurrence: FR)
  Receive Date: 20190313
  Receipt Date: 20190313
  Transmission Date: 20190418
  Serious: Yes (Hospitalization)
  Sender: FDA-Public Use
  Company Number: FR-ACCORD-112255

PATIENT
  Age: 69 Year
  Sex: Male

DRUGS (11)
  1. PERINDOPRIL/PERINDOPRIL ERBUMINE [Concomitant]
  2. DUROGESIC [Concomitant]
     Active Substance: FENTANYL
  3. CISPLATIN ACCORD [Suspect]
     Active Substance: CISPLATIN
     Indication: METASTATIC SQUAMOUS CELL CARCINOMA
     Dosage: STRENGTH 1 MG / ML
     Route: 042
     Dates: start: 20180730, end: 20180730
  4. OXYCONTIN [Concomitant]
     Active Substance: OXYCODONE HYDROCHLORIDE
  5. OXYNORM [Concomitant]
     Active Substance: OXYCODONE HYDROCHLORIDE
  6. KARDEGIC [Concomitant]
     Active Substance: ASPIRIN DL-LYSINE
  7. MACROGOL 4000 [Concomitant]
     Active Substance: POLYETHYLENE GLYCOL 4000
  8. ATORVASTATIN [Concomitant]
     Active Substance: ATORVASTATIN
  9. PARACETAMOL [Concomitant]
     Active Substance: ACETAMINOPHEN
  10. METFORMIN [Concomitant]
     Active Substance: METFORMIN HYDROCHLORIDE
  11. EFFEXOR [Concomitant]
     Active Substance: VENLAFAXINE HYDROCHLORIDE

REACTIONS (4)
  - Mucosal inflammation [Recovering/Resolving]
  - Pyrexia [Recovering/Resolving]
  - Acute kidney injury [Recovered/Resolved]
  - Weight decreased [Not Recovered/Not Resolved]

NARRATIVE: CASE EVENT DATE: 20180820
